FAERS Safety Report 12686425 (Version 1)
Quarter: 2016Q3

REPORT INFORMATION
  Report Type: Spontaneous
  Country: US (occurrence: US)
  Receive Date: 20160825
  Receipt Date: 20160825
  Transmission Date: 20161109
  Serious: No
  Sender: FDA-Public Use
  Company Number: US-JAZZ-2016-US-007006

PATIENT
  Sex: Female

DRUGS (4)
  1. KLONOPIN [Concomitant]
     Active Substance: CLONAZEPAM
  2. XYREM [Suspect]
     Active Substance: SODIUM OXYBATE
     Indication: NARCOLEPSY
     Dosage: 3.5 G, BID
     Route: 048
     Dates: start: 201602
  3. FETZIMA ER [Concomitant]
  4. MODAFINIL. [Concomitant]
     Active Substance: MODAFINIL

REACTIONS (2)
  - Nausea [Not Recovered/Not Resolved]
  - Fatigue [Not Recovered/Not Resolved]

NARRATIVE: CASE EVENT DATE: 2016
